FAERS Safety Report 24688910 (Version 1)
Quarter: 2024Q4

REPORT INFORMATION
  Report Type: Spontaneous
  Country: NL (occurrence: NL)
  Receive Date: 20241203
  Receipt Date: 20241203
  Transmission Date: 20250114
  Serious: Yes (Other)
  Sender: AMGEN
  Company Number: NL-AMGEN-NLDSP2024235268

PATIENT

DRUGS (1)
  1. ECULIZUMAB [Suspect]
     Active Substance: ECULIZUMAB
     Indication: Paroxysmal nocturnal haemoglobinuria
     Dosage: UNK
     Route: 065

REACTIONS (7)
  - Type III immune complex mediated reaction [Unknown]
  - Adverse event [Unknown]
  - Rash [Unknown]
  - Arthralgia [Unknown]
  - Myalgia [Unknown]
  - COVID-19 [Unknown]
  - Pyrexia [Unknown]
